FAERS Safety Report 10687790 (Version 1)
Quarter: 2014Q4

REPORT INFORMATION
  Report Type: Spontaneous
  Country: US (occurrence: None)
  Receive Date: 20141231
  Receipt Date: 20141231
  Transmission Date: 20150529
  Serious: No
  Sender: FDA-Public Use
  Company Number: None

PATIENT
  Age: 53 Year
  Sex: Female
  Weight: 84.82 kg

DRUGS (1)
  1. QSYMIA [Suspect]
     Active Substance: PHENTERMINE HYDROCHLORIDE\TOPIRAMATE
     Indication: WEIGHT DECREASED
     Dosage: 1 PILL
     Route: 048
     Dates: start: 20141015, end: 20141220

REACTIONS (3)
  - Sinus congestion [None]
  - Drug ineffective [None]
  - Breast pain [None]

NARRATIVE: CASE EVENT DATE: 20141222
